FAERS Safety Report 6151359-9 (Version None)
Quarter: 2009Q2

REPORT INFORMATION
  Report Type: 
  Country: None (occurrence: None)
  Receive Date: 20090410
  Receipt Date: 20090407
  Transmission Date: 20091009
  Serious: Yes (Death, Hospitalization, Other)
  Sender: FDA-Public Use
  Company Number: PHHY2009BR13267

PATIENT
  Age: 66 Year
  Sex: Female

DRUGS (4)
  1. FORASEQ [Suspect]
     Indication: EMPHYSEMA
     Dosage: UNK
     Dates: start: 20071101
  2. FORASEQ [Suspect]
     Indication: DYSPNOEA
  3. FUROSEMIDE [Concomitant]
  4. AAS [Concomitant]

REACTIONS (5)
  - METASTASES TO HEART [None]
  - METASTASES TO LUNG [None]
  - METASTASES TO STOMACH [None]
  - RENAL PAIN [None]
  - UTERINE CANCER [None]
